FAERS Safety Report 6028354-3 (Version None)
Quarter: 2009Q1

REPORT INFORMATION
  Report Type: 
  Country: None (occurrence: None)
  Receive Date: 20090106
  Receipt Date: 20081230
  Transmission Date: 20090719
  Serious: Yes (Death, Other)
  Sender: FDA-Public Use
  Company Number: RU-BRISTOL-MYERS SQUIBB COMPANY-14457774

PATIENT
  Age: 24 Year
  Sex: Female

DRUGS (1)
  1. DASATINIB [Suspect]
     Indication: CHRONIC MYELOID LEUKAEMIA
     Route: 048
     Dates: start: 20080628, end: 20081205

REACTIONS (3)
  - BLAST CELL PROLIFERATION [None]
  - PNEUMONIA [None]
  - RESPIRATORY FAILURE [None]
